FAERS Safety Report 6155863-9 (Version None)
Quarter: 2009Q2

REPORT INFORMATION
  Report Type: 
  Country: None (occurrence: None)
  Receive Date: 20090415
  Receipt Date: 20090407
  Transmission Date: 20091009
  Serious: Yes (Other)
  Sender: FDA-Public Use
  Company Number: FR-AMGEN-US342502

PATIENT
  Sex: Female

DRUGS (3)
  1. ENBREL [Suspect]
     Indication: RHEUMATOID ARTHRITIS
     Route: 058
     Dates: start: 20090316
  2. NOVATREX [Concomitant]
     Indication: RHEUMATOID ARTHRITIS
     Dosage: 15 MG TOTAL WEEKLY
     Route: 058
     Dates: start: 20030101
  3. RIFINAH [Concomitant]
     Dosage: UNKNOWN
     Route: 048

REACTIONS (5)
  - ALOPECIA [None]
  - ASTHENIA [None]
  - DEPRESSED MOOD [None]
  - LABORATORY TEST ABNORMAL [None]
  - SYSTEMIC LUPUS ERYTHEMATOSUS [None]
